FAERS Safety Report 10673262 (Version 1)
Quarter: 2014Q4

REPORT INFORMATION
  Report Type: Spontaneous
  Country: DE (occurrence: DE)
  Receive Date: 20141224
  Receipt Date: 20141224
  Transmission Date: 20150529
  Serious: Yes (Life-Threatening, Hospitalization, Other)
  Sender: FDA-Public Use
  Company Number: DE-DRREDDYS-GER/GER/14/0045056

PATIENT
  Age: 44 Year
  Sex: Female

DRUGS (13)
  1. QUILONUM RETARD [Interacting]
     Active Substance: LITHIUM CARBONATE
     Indication: PRODUCT USED FOR UNKNOWN INDICATION
     Dates: start: 20130328
  2. RISPERIDONE. [Suspect]
     Active Substance: RISPERIDONE
     Indication: PRODUCT USED FOR UNKNOWN INDICATION
  3. ABILIFY [Interacting]
     Active Substance: ARIPIPRAZOLE
     Dates: start: 20121207, end: 20130314
  4. CYMBALTA [Interacting]
     Active Substance: DULOXETINE HYDROCHLORIDE
     Indication: PRODUCT USED FOR UNKNOWN INDICATION
  5. PANTOZOL [Concomitant]
     Active Substance: PANTOPRAZOLE SODIUM
     Indication: PRODUCT USED FOR UNKNOWN INDICATION
  6. ELONTRIL [Interacting]
     Active Substance: BUPROPION HYDROCHLORIDE
     Dates: start: 20130315
  7. ABILIFY [Interacting]
     Active Substance: ARIPIPRAZOLE
     Indication: PRODUCT USED FOR UNKNOWN INDICATION
     Dates: start: 20121207, end: 20130314
  8. QUILONUM RETARD [Interacting]
     Active Substance: LITHIUM CARBONATE
     Dates: start: 20130313
  9. ELONTRIL [Interacting]
     Active Substance: BUPROPION HYDROCHLORIDE
     Indication: PRODUCT USED FOR UNKNOWN INDICATION
     Dates: start: 20130206, end: 20130314
  10. QUILONUM RETARD [Interacting]
     Active Substance: LITHIUM CARBONATE
     Dates: start: 20130301, end: 20130307
  11. LORAZEPAM. [Concomitant]
     Active Substance: LORAZEPAM
     Indication: PRODUCT USED FOR UNKNOWN INDICATION
  12. QUILONUM RETARD [Interacting]
     Active Substance: LITHIUM CARBONATE
     Dates: start: 20130308, end: 20130313
  13. BIPERIDEN [Concomitant]
     Active Substance: BIPERIDEN
     Indication: PRODUCT USED FOR UNKNOWN INDICATION

REACTIONS (2)
  - Drug interaction [Unknown]
  - Serotonin syndrome [Recovered/Resolved]

NARRATIVE: CASE EVENT DATE: 20130310
